FAERS Safety Report 5060336-0 (Version None)
Quarter: 2006Q3

REPORT INFORMATION
  Report Type: 
  Country: None (occurrence: None)
  Receive Date: 20060718
  Receipt Date: 20060630
  Transmission Date: 20061208
  Serious: Yes (Hospitalization)
  Sender: FDA-Public Use
  Company Number: US200605004615

PATIENT
  Age: 44 Year
  Sex: Male
  Weight: 57.6 kg

DRUGS (5)
  1. FORTEO [Suspect]
     Indication: OSTEOPOROSIS
     Dosage: 20 U G, DAILY (1/D)
     Dates: start: 20050101
  2. FORTEO [Concomitant]
  3. FOSAMAX [Concomitant]
  4. CALCIUM (CALCIUM) [Concomitant]
  5. ASPIRIN [Concomitant]

REACTIONS (11)
  - COAGULOPATHY [None]
  - CONTUSION [None]
  - FALL [None]
  - FATIGUE [None]
  - HAEMOGLOBIN DECREASED [None]
  - INTERNATIONAL NORMALISED RATIO INCREASED [None]
  - MOUTH HAEMORRHAGE [None]
  - PHARMACEUTICAL PRODUCT COMPLAINT [None]
  - PLATELET COUNT INCREASED [None]
  - PROTHROMBIN TIME PROLONGED [None]
  - RECTAL HAEMORRHAGE [None]
